FAERS Safety Report 5352346-0 (Version None)
Quarter: 2007Q2

REPORT INFORMATION
  Report Type: 
  Country: None (occurrence: None)
  Receive Date: 20070607
  Receipt Date: 20070525
  Transmission Date: 20071010
  Serious: Yes (Other)
  Sender: FDA-Public Use
  Company Number: FEI2007-0917

PATIENT
  Age: 50 Year
  Sex: Female

DRUGS (1)
  1. COPPER T [Suspect]
     Indication: CONTRACEPTION
     Dosage: NA, NA, INTRA-UTERINE
     Route: 015

REACTIONS (6)
  - CALCULUS BLADDER [None]
  - COMPLICATION OF DEVICE REMOVAL [None]
  - INCONTINENCE [None]
  - IUD MIGRATION [None]
  - URINARY TRACT INFECTION [None]
  - UTERINE PERFORATION [None]
